FAERS Safety Report 9732760 (Version 1)
Quarter: 2013Q4

REPORT INFORMATION
  Report Type: Spontaneous
  Country: IT (occurrence: IT)
  Receive Date: 20131204
  Receipt Date: 20131204
  Transmission Date: 20140711
  Serious: Yes (Hospitalization)
  Sender: FDA-Public Use
  Company Number: IT-GLAXOSMITHKLINE-B0949532A

PATIENT
  Age: 50 Year
  Sex: Female

DRUGS (2)
  1. RANIDIL [Suspect]
     Indication: CHEMOTHERAPY
     Dosage: 2UNIT PER DAY
     Route: 042
     Dates: start: 20131004, end: 20131122
  2. BEVACIZUMAB [Suspect]
     Indication: BREAST CANCER
     Route: 042
     Dates: start: 20131004, end: 20131122

REACTIONS (6)
  - Respiratory distress [Recovering/Resolving]
  - Erythema [Recovering/Resolving]
  - Malaise [Recovering/Resolving]
  - Chest pain [Recovering/Resolving]
  - Hypotension [Recovering/Resolving]
  - Vomiting [Recovering/Resolving]
